FAERS Safety Report 21719423 (Version 2)
Quarter: 2024Q3

REPORT INFORMATION
  Report Type: Spontaneous
  Country: FR (occurrence: None)
  Receive Date: 20221213
  Receipt Date: 20240820
  Transmission Date: 20241017
  Serious: Yes (Hospitalization, Other)
  Sender: ORION
  Company Number: FR-Orion Corporation ORION PHARMA-TREX2022-0321

PATIENT
  Age: 51 Year
  Sex: Female

DRUGS (18)
  1. METHOTREXATE [Suspect]
     Active Substance: METHOTREXATE
     Indication: Psoriasis
  2. METHOTREXATE [Suspect]
     Active Substance: METHOTREXATE
     Indication: Psoriatic arthropathy
  3. ADALIMUMAB [Suspect]
     Active Substance: ADALIMUMAB
     Indication: Psoriatic arthropathy
  4. SECUKINUMAB [Suspect]
     Active Substance: SECUKINUMAB
     Indication: Psoriatic arthropathy
     Dates: start: 201609
  5. SECUKINUMAB [Suspect]
     Active Substance: SECUKINUMAB
     Indication: Psoriasis
  6. CYCLOSPORINE [Suspect]
     Active Substance: CYCLOSPORINE
     Indication: Psoriatic arthropathy
  7. CYCLOSPORINE [Suspect]
     Active Substance: CYCLOSPORINE
     Indication: Psoriasis
  8. IXEKIZUMAB [Suspect]
     Active Substance: IXEKIZUMAB
     Indication: Psoriatic arthropathy
     Dates: start: 201803
  9. IXEKIZUMAB [Suspect]
     Active Substance: IXEKIZUMAB
     Indication: Psoriasis
     Dates: start: 201803
  10. LEFLUNOMIDE [Suspect]
     Active Substance: LEFLUNOMIDE
     Indication: Psoriatic arthropathy
  11. LEFLUNOMIDE [Suspect]
     Active Substance: LEFLUNOMIDE
     Indication: Psoriasis
  12. USTEKINUMAB [Suspect]
     Active Substance: USTEKINUMAB
     Indication: Psoriasis
  13. USTEKINUMAB [Suspect]
     Active Substance: USTEKINUMAB
     Indication: Psoriatic arthropathy
  14. ETANERCEPT [Suspect]
     Active Substance: ETANERCEPT
     Indication: Psoriatic arthropathy
  15. ETANERCEPT [Suspect]
     Active Substance: ETANERCEPT
     Indication: Psoriasis
  16. PREDNISONE [Suspect]
     Active Substance: PREDNISONE
     Indication: Psoriasis
  17. PREDNISONE [Suspect]
     Active Substance: PREDNISONE
     Dosage: 5-20 MG
  18. SUMATRIPTAN [Concomitant]
     Active Substance: SUMATRIPTAN
     Indication: Evidence based treatment

REACTIONS (7)
  - Treatment failure [Unknown]
  - Infection reactivation [Recovered/Resolved]
  - Deafness [Recovering/Resolving]
  - Meningoradiculitis [Recovered/Resolved]
  - Varicella zoster virus infection [Recovering/Resolving]
  - Facial paralysis [Recovering/Resolving]
  - Cerebral venous thrombosis [Recovered/Resolved]
